FAERS Safety Report 5902887-X (Version None)
Quarter: 2008Q3

REPORT INFORMATION
  Report Type: 
  Country: None (occurrence: None)
  Receive Date: 20080930
  Receipt Date: 20080922
  Transmission Date: 20090109
  Serious: Yes (Other)
  Sender: FDA-Public Use
  Company Number: PHHY2008FR19829

PATIENT
  Age: 25 Year
  Sex: Male
  Weight: 114 kg

DRUGS (2)
  1. RITALIN [Suspect]
     Indication: ATTENTION DEFICIT/HYPERACTIVITY DISORDER
     Dosage: 30 MG, QID
     Route: 048
  2. MOCLOBEMIDE [Concomitant]

REACTIONS (4)
  - ANOREXIA [None]
  - CONDITION AGGRAVATED [None]
  - TOBACCO ABUSE [None]
  - WEIGHT DECREASED [None]
